FAERS Safety Report 13123859 (Version 3)
Quarter: 2018Q1

REPORT INFORMATION
  Report Type: Report from Study
  Country: US (occurrence: US)
  Receive Date: 20170118
  Receipt Date: 20180213
  Transmission Date: 20180508
  Serious: Yes (Other)
  Sender: FDA-Public Use
  Company Number: US-ROCHE-1878548

PATIENT
  Sex: Female

DRUGS (3)
  1. LUCENTIS [Suspect]
     Active Substance: RANIBIZUMAB
     Indication: NEOVASCULAR AGE-RELATED MACULAR DEGENERATION
  2. LUCENTIS [Suspect]
     Active Substance: RANIBIZUMAB
     Indication: NEOVASCULAR AGE-RELATED MACULAR DEGENERATION
     Route: 050
  3. LUCENTIS [Suspect]
     Active Substance: RANIBIZUMAB
     Indication: CHOROIDAL NEOVASCULARISATION

REACTIONS (10)
  - Hypotension [Unknown]
  - Eye haemorrhage [Unknown]
  - Cardiac fibrillation [Unknown]
  - Blindness unilateral [Unknown]
  - Scab [Unknown]
  - Visual impairment [Unknown]
  - Scar [Unknown]
  - Temporal arteritis [Unknown]
  - Hypertension [Unknown]
  - Drug ineffective [Unknown]
